FAERS Safety Report 23655502 (Version 1)
Quarter: 2024Q1

REPORT INFORMATION
  Report Type: Report from Study
  Country: TW (occurrence: TW)
  Receive Date: 20240320
  Receipt Date: 20240320
  Transmission Date: 20240410
  Serious: Yes (Hospitalization)
  Sender: FDA-Public Use
  Company Number: TW-ABBVIE-5683029

PATIENT
  Age: 68 Year
  Sex: Female
  Weight: 81 kg

DRUGS (1)
  1. SKYRIZI [Suspect]
     Active Substance: RISANKIZUMAB-RZAA
     Indication: Psoriasis
     Route: 058
     Dates: start: 20230921

REACTIONS (1)
  - Tachycardia [Recovered/Resolved]

NARRATIVE: CASE EVENT DATE: 20240303
